FAERS Safety Report 10018613 (Version 1)
Quarter: 2014Q1

REPORT INFORMATION
  Report Type: Spontaneous
  Country: US (occurrence: None)
  Receive Date: 20140314
  Receipt Date: 20140314
  Transmission Date: 20141002
  Serious: Yes (Disabling, Other)
  Sender: FDA-Public Use
  Company Number: None

PATIENT
  Age: 84 Year
  Sex: Female
  Weight: 74.84 kg

DRUGS (1)
  1. LEVOFLOXIN [Suspect]
     Indication: UPPER RESPIRATORY TRACT INFECTION
     Dosage: 1 PILL
     Route: 048
     Dates: start: 20131205, end: 20131214

REACTIONS (2)
  - Muscle disorder [None]
  - Tendon disorder [None]
